FAERS Safety Report 25412571 (Version 1)
Quarter: 2025Q2

REPORT INFORMATION
  Report Type: Spontaneous
  Country: US (occurrence: None)
  Receive Date: 20250606
  Receipt Date: 20250606
  Transmission Date: 20250717
  Serious: Yes (Life-Threatening, Hospitalization)
  Sender: FDA-CTU
  Company Number: None

PATIENT
  Age: 65 Year
  Sex: Female
  Weight: 79.9 kg

DRUGS (1)
  1. VENOFER [Suspect]
     Active Substance: IRON SUCROSE
     Indication: Iron deficiency anaemia
     Route: 041
     Dates: start: 20250602, end: 20250602

REACTIONS (3)
  - Cardiomyopathy [None]
  - Stress [None]
  - Infusion related reaction [None]

NARRATIVE: CASE EVENT DATE: 20250602
